FAERS Safety Report 16717745 (Version 7)
Quarter: 2025Q4

REPORT INFORMATION
  Report Type: Spontaneous
  Country: EU (occurrence: EU)
  Receive Date: 20190819
  Receipt Date: 20251006
  Transmission Date: 20260117
  Serious: Yes (Other)
  Sender: NOVARTIS
  Company Number: PHHY2019DE190202

PATIENT
  Age: 27 Year
  Sex: Female

DRUGS (5)
  1. CYCLOSPORINE [Suspect]
     Active Substance: CYCLOSPORINE
     Indication: Aplastic anaemia
     Dosage: UNK, SYSTEMIC
     Route: 065
  2. CYCLOSPORINE [Suspect]
     Active Substance: CYCLOSPORINE
     Dosage: SYSTEMIC CICLOSPORIN THERAPY
     Route: 065
  3. CYCLOSPORINE [Suspect]
     Active Substance: CYCLOSPORINE
     Dosage: UNK (THERAPY HAD BEEN GRADUALLY INCREASED BEFOREHAND TO ACHIEVE SERUM CONCENTRATIONS OF 200 NG/ML )
     Route: 065
  4. PREDNISOLONE [Suspect]
     Active Substance: PREDNISOLONE
     Indication: Allergy prophylaxis
     Dosage: UNK, SYSTEMIC
     Route: 065
  5. LAPINE T-LYMPHOCYTE IMMUNE GLOBULIN [Suspect]
     Active Substance: LAPINE T-LYMPHOCYTE IMMUNE GLOBULIN
     Indication: Aplastic anaemia
     Dosage: UNK
     Route: 065

REACTIONS (11)
  - Glaucoma [Recovered/Resolved]
  - Intraocular pressure increased [Recovered/Resolved]
  - Sudden visual loss [Recovered/Resolved]
  - Eye pain [Recovered/Resolved]
  - Ciliary body disorder [Recovered/Resolved]
  - Retinal detachment [Recovered/Resolved]
  - Retinal deposits [Recovered/Resolved]
  - Drug level increased [Unknown]
  - Chorioretinal folds [Recovered/Resolved]
  - Myopia [Recovered/Resolved]
  - Off label use [Unknown]
